FAERS Safety Report 5123571-9 (Version None)
Quarter: 2006Q4

REPORT INFORMATION
  Report Type: 
  Country: None (occurrence: None)
  Receive Date: 20061010
  Receipt Date: 20061002
  Transmission Date: 20070319
  Serious: Yes (Hospitalization)
  Sender: FDA-Public Use
  Company Number: US-JNJFOC-20061000721

PATIENT
  Sex: Female
  Weight: 84.82 kg

DRUGS (1)
  1. DURAGESIC-100 [Suspect]
     Indication: PAIN
     Route: 062

REACTIONS (4)
  - DEMENTIA [None]
  - DYSKINESIA [None]
  - PARKINSON'S DISEASE [None]
  - TREMOR [None]
